FAERS Safety Report 8596443-5 (Version None)
Quarter: 2012Q3

REPORT INFORMATION
  Report Type: 
  Country: None (occurrence: None)
  Receive Date: 20120815
  Receipt Date: 20120808
  Transmission Date: 20120928
  Serious: Yes (Other)
  Sender: FDA-Public Use
  Company Number: GB-PFIZER INC-2012178298

PATIENT
  Age: 66 Year
  Sex: Male
  Weight: 95 kg

DRUGS (9)
  1. DILTIAZEM HCL [Concomitant]
     Dates: start: 20120613, end: 20120711
  2. LOSARTAN POTASSIUM [Concomitant]
     Dates: start: 20120620
  3. CIALIS [Concomitant]
     Dates: start: 20120412
  4. SYMBICORT [Concomitant]
     Dates: start: 20120412
  5. FLUOXETINE HCL [Concomitant]
     Dates: start: 20120514, end: 20120613
  6. OMEPRAZOLE [Concomitant]
     Dates: start: 20120521, end: 20120618
  7. ATORVASTATIN [Suspect]
     Dosage: UNK
     Dates: start: 20120316
  8. CORACTEN [Concomitant]
     Dates: start: 20120514
  9. ROSUVASTATIN [Concomitant]
     Dates: start: 20120712

REACTIONS (1)
  - SUICIDAL IDEATION [None]
